FAERS Safety Report 7408476-2 (Version None)
Quarter: 2011Q2

REPORT INFORMATION
  Report Type: 
  Country: None (occurrence: None)
  Receive Date: 20110412
  Receipt Date: 20110404
  Transmission Date: 20111010
  Serious: Yes (Other)
  Sender: FDA-Public Use
  Company Number: JP-B.I. PHARMACEUTICALS,INC./RIDGEFIELD-2011-BP-09821NB

PATIENT
  Age: 82 Year
  Sex: Female

DRUGS (8)
  1. FOSAMAC 5MG [Suspect]
     Route: 048
  2. BUP-4 [Suspect]
     Route: 048
  3. MICARDIS [Suspect]
     Indication: HYPERTENSION
     Route: 048
  4. PRAZAXA [Suspect]
     Indication: ATRIAL FIBRILLATION
     Route: 048
     Dates: start: 20110323, end: 20110330
  5. OMEPRAL [Suspect]
     Route: 048
  6. ONEALFA [Suspect]
     Route: 048
  7. CONIEL [Suspect]
     Indication: HYPERTENSION
     Route: 048
  8. DOXAZOSIN MESYLATE [Suspect]
     Route: 048

REACTIONS (3)
  - BLOOD CREATINE PHOSPHOKINASE INCREASED [None]
  - RHABDOMYOLYSIS [None]
  - HAEMATURIA [None]
